FAERS Safety Report 5452764-6 (Version None)
Quarter: 2007Q3

REPORT INFORMATION
  Report Type: 
  Country: None (occurrence: None)
  Receive Date: 20070914
  Receipt Date: 20070821
  Transmission Date: 20080115
  Serious: Yes (Other)
  Sender: FDA-Public Use
  Company Number: US-SANOFI-SYNTHELABO-A03200705259

PATIENT
  Sex: Female

DRUGS (6)
  1. ACTONEL [Concomitant]
     Dosage: UNK
     Route: 065
     Dates: start: 20070415, end: 20070101
  2. ROZEREM [Interacting]
     Indication: DRUG USE FOR UNKNOWN INDICATION
     Dosage: UNK
     Route: 065
     Dates: start: 20070519, end: 20070101
  3. CELLCEPT [Interacting]
     Indication: SYSTEMIC LUPUS ERYTHEMATOSUS
     Route: 065
     Dates: start: 20070415, end: 20070601
  4. CELLCEPT [Interacting]
     Route: 065
     Dates: start: 20070601
  5. PLAQUENIL [Suspect]
     Indication: DRUG USE FOR UNKNOWN INDICATION
     Dosage: UNK
     Route: 048
     Dates: end: 20070101
  6. PLAQUENIL [Interacting]
     Route: 048
     Dates: start: 20070101

REACTIONS (5)
  - ALOPECIA [None]
  - CONDITION AGGRAVATED [None]
  - DRUG INTERACTION [None]
  - ORAL DISORDER [None]
  - SJOGREN'S SYNDROME [None]
